FAERS Safety Report 10652135 (Version 3)
Quarter: 2015Q1

REPORT INFORMATION
  Report Type: Spontaneous
  Country: US (occurrence: US)
  Receive Date: 20141215
  Receipt Date: 20150313
  Transmission Date: 20150720
  Serious: Yes (Death, Hospitalization)
  Sender: FDA-Public Use
  Company Number: US-ACTELION-A-NJ2014-109474

PATIENT
  Age: 66 Year
  Sex: Female
  Weight: 79.37 kg

DRUGS (8)
  1. OPSUMIT [Suspect]
     Active Substance: MACITENTAN
     Indication: PULMONARY HYPERTENSION
     Dosage: 10 MG, UNK
     Route: 048
  2. PREDNISONE. [Concomitant]
     Active Substance: PREDNISONE
     Dosage: 5 MG, TID
  3. CALCIUM CITRATE [Concomitant]
     Active Substance: CALCIUM CITRATE
     Dosage: 600-1200 MG, QD
  4. REMODULIN [Concomitant]
     Active Substance: TREPROSTINIL
     Dosage: 103 NG, CONT INFUS
     Route: 042
  5. XANAX [Concomitant]
     Active Substance: ALPRAZOLAM
     Dosage: .012 MG, PRN
  6. CYMBALTA [Suspect]
     Active Substance: DULOXETINE HYDROCHLORIDE
     Indication: PRODUCT USED FOR UNKNOWN INDICATION
     Dosage: 20 MG, BID
     Route: 065
  7. FLONASE [Concomitant]
     Active Substance: FLUTICASONE PROPIONATE
     Dosage: 2 SPRAY, EACH NARES QD
     Route: 045
  8. NEXIUM [Concomitant]
     Active Substance: ESOMEPRAZOLE MAGNESIUM
     Dosage: 20 MG, BID

REACTIONS (9)
  - Pneumonia [Fatal]
  - Pulmonary hypertension [Fatal]
  - Disease progression [Fatal]
  - Endotracheal intubation [Unknown]
  - Appetite disorder [Unknown]
  - Aphasia [Unknown]
  - Abnormal loss of weight [Unknown]
  - Phobia [Unknown]
  - Cardiac disorder [Fatal]

NARRATIVE: CASE EVENT DATE: 20141216
